FAERS Safety Report 4781097-6 (Version None)
Quarter: 2005Q3

REPORT INFORMATION
  Report Type: 
  Country: None (occurrence: None)
  Receive Date: 20050926
  Receipt Date: 20050914
  Transmission Date: 20060218
  Serious: Yes (Other)
  Sender: FDA-Public Use
  Company Number: 2005121801

PATIENT
  Sex: Female

DRUGS (7)
  1. LIPITOR [Suspect]
     Indication: BLOOD CHOLESTEROL INCREASED
     Dosage: 10 MG (10 MG, SINGLE INTERVAL: EACH OTHER DAY), ORAL
     Route: 048
  2. ALL OTHER THERAPEUTIC PRODUCTS (ALL OTHER THERAPEUTIC PRODUCTS) [Concomitant]
  3. OMEPRAZOLE [Concomitant]
  4. CLONAZEPAM [Concomitant]
  5. LIMBITROL (AMITRIPTYLINE HYDROCHLORIDE, CHLORDIAZEPOXIDE) [Concomitant]
  6. SOYA LECITHIN (LECITHINUM SOYA) [Concomitant]
  7. VITAMINS W/MINERALS/GINSENG/ (EXTRACTUM GINSENG, MINERALS NOS, VITAMIN [Concomitant]

REACTIONS (3)
  - ABDOMINAL DISTENSION [None]
  - DYSENTERY [None]
  - PNEUMONIA [None]
